FAERS Safety Report 17292354 (Version 1)
Quarter: 2020Q1

REPORT INFORMATION
  Report Type: Report from Study
  Country: IT (occurrence: IT)
  Receive Date: 20200121
  Receipt Date: 20200121
  Transmission Date: 20200409
  Serious: Yes (Hospitalization)
  Sender: FDA-Public Use
  Company Number: IT-BAYER-2019-228987

PATIENT
  Age: 86 Year
  Sex: Female

DRUGS (7)
  1. FOLINA [FOLIC ACID] [Concomitant]
     Active Substance: FOLIC ACID
     Route: 048
  2. IBUSTRIN [INDOBUFEN SODIUM] [Concomitant]
     Route: 048
  3. OLPRESS [Concomitant]
     Active Substance: OLMESARTAN MEDOXOMIL
     Dosage: 20 MG, UNK
     Route: 048
  4. PANTORC [Concomitant]
     Active Substance: PANTOPRAZOLE SODIUM
     Dosage: 40 MG, UNK
     Route: 048
  5. DIBASE [Concomitant]
     Active Substance: CHOLECALCIFEROL
     Route: 048
  6. DILZENE [Concomitant]
     Active Substance: DILTIAZEM HYDROCHLORIDE
     Dosage: 60 MG, UNK
     Route: 048
  7. CIPROXIN 500 MG [Suspect]
     Active Substance: CIPROFLOXACIN
     Dosage: 500 MG, QD
     Route: 048
     Dates: start: 20191004, end: 20191013

REACTIONS (2)
  - Renal failure [Recovered/Resolved]
  - Nephrogenic anaemia [Recovered/Resolved]

NARRATIVE: CASE EVENT DATE: 20191015
